FAERS Safety Report 5173194-0 (Version None)
Quarter: 2006Q4

REPORT INFORMATION
  Report Type: 
  Country: None (occurrence: None)
  Receive Date: 20061205
  Receipt Date: 20061116
  Transmission Date: 20070319
  Serious: Yes (Hospitalization)
  Sender: FDA-Public Use
  Company Number: 229485

PATIENT
  Age: 47 Year
  Sex: Male
  Weight: 71 kg

DRUGS (4)
  1. AVASTIN [Suspect]
     Indication: COLORECTAL CANCER
     Dosage: 7.5 MG/KG, 3/WEEK, INTRAVENOUS
     Route: 042
     Dates: start: 20060628
  2. AVASTIN [Suspect]
  3. CAPECITABINE(CAPECITABINE) [Suspect]
     Indication: COLORECTAL CANCER
     Dosage: 600 MG/M2, BID ORAL
     Route: 048
     Dates: start: 20060628, end: 20060821
  4. IRINOTECAN HCL [Suspect]
     Indication: COLORECTAL CANCER
     Dosage: 200 MG/M2, 3/WEEK, INTRAVENOUS
     Route: 042
     Dates: start: 20060628

REACTIONS (2)
  - ANAL ULCER [None]
  - NAUSEA [None]
